FAERS Safety Report 4834540-8 (Version None)
Quarter: 2005Q4

REPORT INFORMATION
  Report Type: 
  Country: None (occurrence: None)
  Receive Date: 20051122
  Receipt Date: 20050217
  Transmission Date: 20060501
  Serious: No
  Sender: FDA-Public Use
  Company Number: US-BRISTOL-MYERS SQUIBB COMPANY-12868089

PATIENT
  Sex: Female

DRUGS (3)
  1. PRAVACHOL [Suspect]
     Indication: HYPERCHOLESTEROLAEMIA
     Route: 048
     Dates: start: 20050124
  2. LISINOPRIL [Concomitant]
     Dates: start: 20050124
  3. GLYBURIDE [Concomitant]
     Dates: start: 20050124

REACTIONS (1)
  - PREGNANCY [None]
